FAERS Safety Report 4835454-X (Version None)
Quarter: 2005Q4

REPORT INFORMATION
  Report Type: 
  Country: None (occurrence: None)
  Receive Date: 20051122
  Receipt Date: 20051122
  Transmission Date: 20060501
  Serious: Yes (Other)
  Sender: FDA-Public Use
  Company Number: None

PATIENT
  Age: 61 Year
  Sex: Male
  Weight: 109 kg

DRUGS (1)
  1. CITALOPRAM HYDROBROMIDE [Suspect]
     Indication: DEPRESSION
     Dosage: 20 MG Q PM PO
     Route: 048
     Dates: start: 20051118, end: 20051120

REACTIONS (3)
  - PAIN [None]
  - PRIAPISM [None]
  - SENSORY DISTURBANCE [None]
